FAERS Safety Report 22067121 (Version 1)
Quarter: 2023Q1

REPORT INFORMATION
  Report Type: Spontaneous
  Country: US (occurrence: US)
  Receive Date: 20230307
  Receipt Date: 20230307
  Transmission Date: 20230417
  Serious: No
  Sender: FDA-Public Use
  Company Number: US-AMGEN-USASP2023035303

PATIENT

DRUGS (1)
  1. KANJINTI [Suspect]
     Active Substance: TRASTUZUMAB-ANNS
     Indication: Product used for unknown indication
     Dosage: 420 MILLIGRAM
     Route: 065

REACTIONS (4)
  - Product storage error [Unknown]
  - Product administration error [Unknown]
  - Wrong technique in product usage process [Unknown]
  - Product label confusion [Unknown]

NARRATIVE: CASE EVENT DATE: 20230224
